FAERS Safety Report 24256550 (Version 1)
Quarter: 2024Q3

REPORT INFORMATION
  Report Type: Spontaneous
  Country: CN (occurrence: CN)
  Receive Date: 20240828
  Receipt Date: 20240828
  Transmission Date: 20241016
  Serious: Yes (Hospitalization, Other)
  Sender: Haleon PLC
  Company Number: CN-HALEON-2193295

PATIENT
  Age: 59 Year
  Sex: Female
  Weight: 59 kg

DRUGS (4)
  1. VOLTAREN [Suspect]
     Active Substance: DICLOFENAC SODIUM
     Indication: Arthritis bacterial
     Route: 048
     Dates: start: 20240716, end: 20240723
  2. AMOXICILLIN [Suspect]
     Active Substance: AMOXICILLIN
     Indication: Arthritis bacterial
     Dosage: TIME INTERVAL: 0.33333333 DAYS
     Route: 048
     Dates: start: 20240716, end: 20240722
  3. ROSUVASTATIN CALCIUM [Concomitant]
     Active Substance: ROSUVASTATIN CALCIUM
     Indication: Arteriosclerosis coronary artery
     Route: 048
     Dates: start: 20230101, end: 20240723
  4. ESZOPICLONE [Concomitant]
     Active Substance: ESZOPICLONE
     Indication: Insomnia
     Route: 048
     Dates: start: 20240501, end: 20240822

REACTIONS (2)
  - Liver injury [Recovering/Resolving]
  - Arthritis infective [Recovering/Resolving]

NARRATIVE: CASE EVENT DATE: 20240723
